FAERS Safety Report 7292833-1 (Version None)
Quarter: 2011Q1

REPORT INFORMATION
  Report Type: 
  Country: None (occurrence: None)
  Receive Date: 20110215
  Receipt Date: 20110207
  Transmission Date: 20110831
  Serious: Yes (Hospitalization)
  Sender: FDA-Public Use
  Company Number: US-EISAI INC-E7389-01085-CLI-US

PATIENT
  Sex: Female
  Weight: 70 kg

DRUGS (1)
  1. E7389 (BOLD) [Suspect]
     Indication: BREAST CANCER
     Route: 041
     Dates: start: 20100310

REACTIONS (2)
  - SEPSIS [None]
  - FEBRILE NEUTROPENIA [None]
